FAERS Safety Report 4836296-1 (Version None)
Quarter: 2005Q4

REPORT INFORMATION
  Report Type: 
  Country: None (occurrence: None)
  Receive Date: 20051123
  Receipt Date: 20050530
  Transmission Date: 20060501
  Serious: Yes (Hospitalization, Disabling, Other)
  Sender: FDA-Public Use
  Company Number: DEWYE702130MAY05

PATIENT
  Sex: Male

DRUGS (9)
  1. ENBREL [Suspect]
     Indication: RHEUMATOID ARTHRITIS
     Route: 058
     Dates: start: 20031001, end: 20050427
  2. DECORTIN-H [Concomitant]
     Route: 048
  3. VALORON N [Concomitant]
     Route: 048
  4. FOSAMAX [Concomitant]
     Route: 048
     Dates: start: 20031101
  5. CALCIUM CARBONATE, COLECALCIFEROL [Concomitant]
     Route: 048
  6. FORMOTEROL [Concomitant]
     Route: 055
  7. PULMICORT [Concomitant]
  8. FORMOTEROL [Concomitant]
  9. BUDESONIDE [Concomitant]

REACTIONS (7)
  - ANTINEUTROPHIL CYTOPLASMIC ANTIBODY POSITIVE [None]
  - ANTINUCLEAR ANTIBODY POSITIVE [None]
  - DEAFNESS BILATERAL [None]
  - DEMYELINATION [None]
  - DRUG INEFFECTIVE [None]
  - TINNITUS [None]
  - VASCULITIC RASH [None]
